FAERS Safety Report 8991453 (Version 1)
Quarter: 2012Q4

REPORT INFORMATION
  Report Type: Report from Study
  Country: CA (occurrence: CA)
  Receive Date: 20121231
  Receipt Date: 20121231
  Transmission Date: 20130627
  Serious: Yes (Other)
  Sender: FDA-Public Use
  Company Number: CA-ROCHE-1171847

PATIENT
  Sex: Male
  Weight: 75.08 kg

DRUGS (6)
  1. OMALIZUMAB [Suspect]
     Indication: ASTHMA
     Route: 058
     Dates: start: 20071010
  2. OMALIZUMAB [Suspect]
     Route: 058
     Dates: start: 20090623
  3. OMALIZUMAB [Suspect]
     Route: 065
     Dates: start: 20120509
  4. BEROTEC [Concomitant]
     Indication: PRODUCT USED FOR UNKNOWN INDICATION
  5. NASONEX [Concomitant]
  6. BEROTEC [Concomitant]

REACTIONS (15)
  - Sinusitis [Recovering/Resolving]
  - Infection [Unknown]
  - Ear infection [Not Recovered/Not Resolved]
  - Sinus congestion [Unknown]
  - Adenoidectomy [Unknown]
  - Heart rate irregular [Unknown]
  - Ear pain [Unknown]
  - Nasopharyngitis [Unknown]
  - Sinus disorder [Unknown]
  - Respiratory rate increased [Unknown]
  - Productive cough [Unknown]
  - Cough [Unknown]
  - Blood pressure increased [Unknown]
  - Dyspnoea [Unknown]
  - Dysgeusia [Unknown]
